FAERS Safety Report 9798436 (Version 7)
Quarter: 2014Q1

REPORT INFORMATION
  Report Type: Report from Study
  Country: AR (occurrence: AR)
  Receive Date: 20140106
  Receipt Date: 20140319
  Transmission Date: 20141002
  Serious: Yes (Hospitalization)
  Sender: FDA-Public Use
  Company Number: AR-PFIZER INC-2014000608

PATIENT
  Age: 42 Year
  Sex: Male

DRUGS (9)
  1. EPAMIN [Suspect]
     Dosage: 100 MG, 3X/DAY
     Route: 048
     Dates: start: 20131214, end: 20131214
  2. EPAMIN [Suspect]
     Dosage: 100 MG, 2X/DAY
     Route: 048
     Dates: start: 20131215, end: 20131215
  3. OMEPRAZOLE [Suspect]
     Dosage: PER DAY (40 MG)
     Route: 042
     Dates: start: 20131214
  4. DEXAMETHASONE [Suspect]
     Dosage: 8 MG, 3X/DAY
     Route: 042
     Dates: start: 20131214
  5. VEMURAFENIB [Suspect]
     Indication: MALIGNANT MELANOMA
     Dosage: 960 MG, 2X/DAY (DATE OF LAST DOSE PRIOR TO SAE:20/DEC/2013)
     Route: 048
     Dates: start: 20120507
  6. VEMURAFENIB [Suspect]
     Dosage: 720 MG, 2X/DAY (DATE OF LAST DOSE PRIOR TO SAE: 13/DEC/2013)
     Route: 048
     Dates: start: 20121127
  7. KEPPRA [Concomitant]
     Dosage: 250 MG, 2X/DAY
     Route: 048
     Dates: start: 20131215, end: 20131215
  8. KEPPRA [Concomitant]
     Dosage: 250 MG, 2X/DAY
     Route: 048
     Dates: start: 20131216
  9. HEPARINE [Concomitant]
     Dosage: 0.2 MG, 2X/DAY
     Route: 058
     Dates: start: 20131214

REACTIONS (1)
  - Blood creatinine increased [Recovered/Resolved]
